FAERS Safety Report 17258700 (Version 1)
Quarter: 2020Q1

REPORT INFORMATION
  Report Type: Spontaneous
  Country: OM (occurrence: OM)
  Receive Date: 20200110
  Receipt Date: 20200110
  Transmission Date: 20200409
  Serious: Yes (Life-Threatening, Hospitalization, Other)
  Sender: FDA-Public Use
  Company Number: OM-APOPHARMA INC-2018AP012756

PATIENT
  Age: 17 Year
  Sex: Female

DRUGS (2)
  1. FERRIPROX [Suspect]
     Active Substance: DEFERIPRONE
     Indication: IRON OVERLOAD
     Dosage: 75 MG/KG, OTHER
     Route: 065
  2. FERRIPROX [Suspect]
     Active Substance: DEFERIPRONE
     Indication: THALASSAEMIA BETA
     Dosage: 100 MG/KG, OTHER
     Route: 065

REACTIONS (5)
  - Lymphopenia [Unknown]
  - Agranulocytosis [Recovered/Resolved]
  - Herpes simplex [Unknown]
  - Mucosal inflammation [Unknown]
  - Sepsis [Unknown]
